FAERS Safety Report 9984995 (Version 1)
Quarter: 2014Q1

REPORT INFORMATION
  Report Type: Report from Study
  Country: US (occurrence: US)
  Receive Date: 20140307
  Receipt Date: 20140307
  Transmission Date: 20141002
  Serious: No
  Sender: FDA-Public Use
  Company Number: US-ABBVIE-14P-163-1186423-00

PATIENT
  Age: 49 Year
  Sex: Female

DRUGS (12)
  1. HUMIRA [Suspect]
     Indication: PSORIATIC ARTHROPATHY
     Dates: start: 20131031
  2. HUMIRA [Suspect]
     Dates: start: 20140107
  3. PREDNISONE [Suspect]
     Indication: PRODUCT USED FOR UNKNOWN INDICATION
  4. HYDROCODONE [Concomitant]
     Indication: PAIN
     Route: 048
  5. TRAMADOLO [Concomitant]
     Indication: SPONDYLITIS
  6. CLONAZEPAM [Concomitant]
     Indication: ANXIETY
     Dosage: 1/2 TO 1 TAB BID
     Route: 048
  7. CYCLOBENZAPRINE [Concomitant]
     Indication: MUSCLE RELAXANT THERAPY
     Route: 048
  8. METHOTREXATE [Concomitant]
     Indication: PRODUCT USED FOR UNKNOWN INDICATION
     Dates: start: 20140107
  9. METHOTREXATE [Concomitant]
  10. PREDNISONE [Concomitant]
     Indication: PAIN
     Route: 048
     Dates: start: 20140107
  11. PREDNISONE [Concomitant]
     Route: 048
  12. PREDNISONE [Concomitant]
     Route: 048

REACTIONS (18)
  - Uveitis [Not Recovered/Not Resolved]
  - Drug ineffective [Unknown]
  - Pain [Unknown]
  - Spondylitis [Unknown]
  - Ear infection [Unknown]
  - Nasopharyngitis [Unknown]
  - Sinusitis [Unknown]
  - Influenza [Unknown]
  - Nasal discomfort [Unknown]
  - Headache [Unknown]
  - Headache [Unknown]
  - Intraocular pressure increased [Unknown]
  - Rhinalgia [Unknown]
  - Anxiety [Unknown]
  - Musculoskeletal pain [Unknown]
  - Back pain [Unknown]
  - Arthralgia [Unknown]
  - Mydriasis [Unknown]
